FAERS Safety Report 21499357 (Version 2)
Quarter: 2022Q4

REPORT INFORMATION
  Report Type: Report from Study
  Country: IT (occurrence: IT)
  Receive Date: 20221024
  Receipt Date: 20221222
  Transmission Date: 20230113
  Serious: Yes (Other)
  Sender: FDA-Public Use
  Company Number: IT-INCYTE CORPORATION-2022IN010158

PATIENT
  Age: 77 Year
  Sex: Male

DRUGS (1)
  1. PONATINIB [Suspect]
     Active Substance: PONATINIB
     Indication: Chronic myeloid leukaemia
     Dosage: UNK
     Route: 065
     Dates: end: 20220319

REACTIONS (1)
  - Cardiovascular examination abnormal [Not Recovered/Not Resolved]

NARRATIVE: CASE EVENT DATE: 20220319
